FAERS Safety Report 15895498 (Version 3)
Quarter: 2019Q4

REPORT INFORMATION
  Report Type: Report from Study
  Country: US (occurrence: US)
  Receive Date: 20190131
  Receipt Date: 20191010
  Transmission Date: 20200122
  Serious: Yes (Life-Threatening, Hospitalization)
  Sender: FDA-Public Use
  Company Number: US-ROCHE-2244450

PATIENT
  Age: 81 Year
  Sex: Male
  Weight: 71.6 kg

DRUGS (13)
  1. CABOZANTINIB [Suspect]
     Active Substance: CABOZANTINIB
     Route: 048
  2. OXYCONTIN [Concomitant]
     Active Substance: OXYCODONE HYDROCHLORIDE
  3. LOVASTATIN. [Concomitant]
     Active Substance: LOVASTATIN
  4. ATEZOLIZUMAB. [Suspect]
     Active Substance: ATEZOLIZUMAB
     Indication: TRANSITIONAL CELL CARCINOMA
     Dosage: 21/NOV/2018, THE PATIENT RECEIVED THE MOST RECENT DOSE OF ATEZOLIZUMAB PRIOR TO THE ONSET OF THE EVE
     Route: 042
     Dates: start: 20181031
  5. DOCUSATE SODIUM. [Concomitant]
     Active Substance: DOCUSATE SODIUM
  6. LORATADINE. [Concomitant]
     Active Substance: LORATADINE
  7. ROXICODONE [Concomitant]
     Active Substance: OXYCODONE HYDROCHLORIDE
  8. TRAMADOL. [Concomitant]
     Active Substance: TRAMADOL
  9. LANSOPRAZOLE. [Concomitant]
     Active Substance: LANSOPRAZOLE
  10. LIDOCAINE. [Concomitant]
     Active Substance: LIDOCAINE
  11. NAPROXEN. [Concomitant]
     Active Substance: NAPROXEN
  12. RANITIDINE. [Concomitant]
     Active Substance: RANITIDINE
  13. CABOZANTINIB [Suspect]
     Active Substance: CABOZANTINIB
     Indication: TRANSITIONAL CELL CARCINOMA
     Dosage: 30/DEC/2018 THE PATIENT RECEIVED THE MOST RECENT DOSE OF CABOZANTINIB PRIOR TO THE ONSET OF THE EVEN
     Route: 048
     Dates: start: 20181031, end: 2018

REACTIONS (3)
  - Sepsis [Recovered/Resolved]
  - Gallbladder rupture [Recovered/Resolved]
  - Atrial fibrillation [Recovered/Resolved]

NARRATIVE: CASE EVENT DATE: 20181229
